FAERS Safety Report 21151681 (Version 6)
Quarter: 2023Q1

REPORT INFORMATION
  Report Type: Spontaneous
  Country: JP (occurrence: JP)
  Receive Date: 20220730
  Receipt Date: 20230204
  Transmission Date: 20230417
  Serious: No
  Sender: FDA-Public Use
  Company Number: JP-UNITED THERAPEUTICS-UNT-2022-016895

PATIENT
  Sex: Female
  Weight: 13.8 kg

DRUGS (39)
  1. UNITUXIN [Suspect]
     Active Substance: DINUTUXIMAB
     Indication: Neuroblastoma
     Dosage: 17.5 MG/M2, CYCLICAL (CYCLE 1)
     Route: 041
     Dates: start: 20220509, end: 20220512
  2. UNITUXIN [Suspect]
     Active Substance: DINUTUXIMAB
     Dosage: 17.5 MG/M2, CYCLICAL (CYCLE 2)
     Route: 041
     Dates: start: 20220607, end: 20220610
  3. UNITUXIN [Suspect]
     Active Substance: DINUTUXIMAB
     Dosage: 17.5 MG/M2, CYCLICAL (CYCLE 3)
     Route: 041
     Dates: start: 20220704, end: 20220707
  4. UNITUXIN [Suspect]
     Active Substance: DINUTUXIMAB
     Dosage: 17.5 MG/M2, CYCLICAL (CYCLE 4)
     Route: 041
     Dates: start: 20220809, end: 20220810
  5. UNITUXIN [Suspect]
     Active Substance: DINUTUXIMAB
     Dosage: 17.5 MG/M2, CYCLICAL (CYCLE 5)
     Route: 041
     Dates: start: 20220905, end: 20220908
  6. UNITUXIN [Suspect]
     Active Substance: DINUTUXIMAB
     Dosage: 17.5 MG/M2, CYCLICAL (CYCLE 6)
     Route: 041
     Dates: start: 20221004, end: 20221007
  7. TECELEUKIN [Suspect]
     Active Substance: TECELEUKIN
     Indication: Neuroblastoma
     Dosage: UNK
     Route: 065
  8. TECELEUKIN [Suspect]
     Active Substance: TECELEUKIN
     Dosage: 750,000 UNITS/M^2, CYCLICAL (CYCLE 2)
     Route: 065
     Dates: start: 20220531, end: 20220603
  9. TECELEUKIN [Suspect]
     Active Substance: TECELEUKIN
     Dosage: 1,000,000 UNITS/M^2, CYCLICAL (CYCLE 2)
     Route: 065
     Dates: start: 20220607, end: 20220610
  10. TECELEUKIN [Suspect]
     Active Substance: TECELEUKIN
     Dosage: UNK (CYCLE 6)
     Route: 065
  11. TECELEUKIN [Suspect]
     Active Substance: TECELEUKIN
     Dosage: 750,000 UNITS/M^2, CYCLICAL
     Route: 065
     Dates: start: 20220726, end: 20220729
  12. TECELEUKIN [Suspect]
     Active Substance: TECELEUKIN
     Dosage: 1,000,000 UNITS/M^2, CYCLICAL
     Route: 065
     Dates: start: 20220809, end: 20220810
  13. TECELEUKIN [Suspect]
     Active Substance: TECELEUKIN
     Dosage: 750,000 UNITS/M^2, CYCLICAL
     Route: 065
     Dates: start: 20220927, end: 20220930
  14. TECELEUKIN [Suspect]
     Active Substance: TECELEUKIN
     Dosage: 1,000,000 UNITS/M^2, CYCLICAL
     Route: 065
     Dates: start: 20221004, end: 20221007
  15. FILGRASTIM [Suspect]
     Active Substance: FILGRASTIM
     Indication: Neuroblastoma
     Dosage: 5 ?G/KG, CYCLICAL
     Route: 065
     Dates: start: 20220506, end: 20220519
  16. FILGRASTIM [Suspect]
     Active Substance: FILGRASTIM
     Dosage: UNK, CYCLICAL (CYCLE 5)
     Route: 065
     Dates: start: 2022, end: 2022
  17. FILGRASTIM [Suspect]
     Active Substance: FILGRASTIM
     Dosage: 5 ?G/KG, CYCLICAL
     Route: 065
     Dates: start: 20220701, end: 20220714
  18. FILGRASTIM [Suspect]
     Active Substance: FILGRASTIM
     Dosage: 5 ?G/KG, CYCLICAL
     Route: 065
     Dates: start: 20220902, end: 20220915
  19. HYDROXYZINE [Concomitant]
     Active Substance: HYDROXYZINE HYDROCHLORIDE
     Indication: Prophylaxis
     Dosage: UNK
     Route: 065
     Dates: start: 20220509, end: 20220512
  20. HYDROXYZINE [Concomitant]
     Active Substance: HYDROXYZINE HYDROCHLORIDE
     Dosage: UNK (CYCLE 2)
     Route: 065
     Dates: start: 20220607, end: 20220610
  21. HYDROXYZINE [Concomitant]
     Active Substance: HYDROXYZINE HYDROCHLORIDE
     Dosage: UNK
     Route: 065
     Dates: start: 20220704, end: 20220707
  22. HYDROXYZINE [Concomitant]
     Active Substance: HYDROXYZINE HYDROCHLORIDE
     Dosage: UNK
     Route: 065
     Dates: start: 20220809, end: 20220810
  23. HYDROXYZINE [Concomitant]
     Active Substance: HYDROXYZINE HYDROCHLORIDE
     Dosage: UNK
     Route: 065
     Dates: start: 20220905, end: 20220908
  24. HYDROXYZINE [Concomitant]
     Active Substance: HYDROXYZINE HYDROCHLORIDE
     Dosage: UNK
     Route: 065
     Dates: start: 20221004, end: 20221007
  25. ACETAMINOPHEN [Concomitant]
     Active Substance: ACETAMINOPHEN
     Indication: Prophylaxis
     Dosage: UNK
     Route: 065
     Dates: start: 20220509, end: 20220513
  26. ACETAMINOPHEN [Concomitant]
     Active Substance: ACETAMINOPHEN
     Dosage: UNK (CYCLE 2)
     Route: 065
     Dates: start: 20220531, end: 20220531
  27. ACETAMINOPHEN [Concomitant]
     Active Substance: ACETAMINOPHEN
     Dosage: UNK (CYCLE 2)
     Route: 065
     Dates: start: 20220607, end: 20220610
  28. ACETAMINOPHEN [Concomitant]
     Active Substance: ACETAMINOPHEN
     Dosage: UNK
     Route: 065
     Dates: start: 20220704, end: 20220707
  29. ACETAMINOPHEN [Concomitant]
     Active Substance: ACETAMINOPHEN
     Dosage: UNK
     Route: 065
     Dates: start: 20220726, end: 20220726
  30. ACETAMINOPHEN [Concomitant]
     Active Substance: ACETAMINOPHEN
     Dosage: UNK
     Route: 065
     Dates: start: 20220809, end: 20220810
  31. ACETAMINOPHEN [Concomitant]
     Active Substance: ACETAMINOPHEN
     Dosage: UNK
     Route: 065
     Dates: start: 20220905, end: 20220908
  32. ACETAMINOPHEN [Concomitant]
     Active Substance: ACETAMINOPHEN
     Dosage: UNK
     Route: 065
     Dates: start: 20220927, end: 20220927
  33. ACETAMINOPHEN [Concomitant]
     Active Substance: ACETAMINOPHEN
     Dosage: UNK
     Route: 065
     Dates: start: 20221004, end: 20221007
  34. MORPHINE [Concomitant]
     Active Substance: MORPHINE
     Indication: Prophylaxis
     Dosage: UNK
     Route: 065
     Dates: start: 20220509, end: 20220512
  35. MORPHINE [Concomitant]
     Active Substance: MORPHINE
     Dosage: UNK (CYCLE 2)
     Route: 065
     Dates: start: 20220607, end: 20220610
  36. MORPHINE [Concomitant]
     Active Substance: MORPHINE
     Dosage: UNK
     Route: 065
     Dates: start: 20220704, end: 20220707
  37. MORPHINE [Concomitant]
     Active Substance: MORPHINE
     Dosage: UNK
     Route: 065
     Dates: start: 20220809, end: 20220810
  38. MORPHINE [Concomitant]
     Active Substance: MORPHINE
     Dosage: UNK
     Route: 065
     Dates: start: 20220905, end: 20220908
  39. MORPHINE [Concomitant]
     Active Substance: MORPHINE
     Dosage: UNK
     Route: 065
     Dates: start: 20221004, end: 20221007

REACTIONS (27)
  - COVID-19 [Recovered/Resolved]
  - Metapneumovirus infection [Recovering/Resolving]
  - Hypoalbuminaemia [Recovered/Resolved]
  - Pyrexia [Recovered/Resolved]
  - Aspartate aminotransferase increased [Recovered/Resolved]
  - Alanine aminotransferase increased [Recovered/Resolved]
  - Neutrophil count decreased [Recovered/Resolved]
  - Platelet count decreased [Recovering/Resolving]
  - Platelet count decreased [Recovered/Resolved]
  - Neutrophil count decreased [Recovered/Resolved]
  - Pyrexia [Recovered/Resolved]
  - Hypoalbuminaemia [Recovered/Resolved]
  - Hypoalbuminaemia [Recovered/Resolved]
  - Pyrexia [Recovered/Resolved]
  - Hypoalbuminaemia [Recovered/Resolved]
  - Pyrexia [Recovered/Resolved]
  - Neutrophil count decreased [Recovered/Resolved]
  - Hypoalbuminaemia [Recovered/Resolved]
  - Pyrexia [Recovered/Resolved]
  - Neutrophil count decreased [Recovered/Resolved]
  - Hypoalbuminaemia [Recovered/Resolved]
  - Pyrexia [Recovered/Resolved]
  - Platelet count decreased [Recovered/Resolved]
  - Platelet count decreased [Recovered/Resolved]
  - Platelet count decreased [Recovered/Resolved]
  - Platelet count decreased [Recovered/Resolved]
  - Neutrophil count decreased [Recovered/Resolved]

NARRATIVE: CASE EVENT DATE: 20220101
